FAERS Safety Report 11687674 (Version 1)
Quarter: 2015Q4

REPORT INFORMATION
  Report Type: Spontaneous
  Country: US (occurrence: None)
  Receive Date: 20151030
  Receipt Date: 20151030
  Transmission Date: 20160304
  Serious: Yes (Hospitalization, Other)
  Sender: FDA-Public Use
  Company Number: US-MDT-ADR-2015-02060

PATIENT
  Age: 64 Year
  Sex: Male

DRUGS (2)
  1. HYDROMORPHONE INTRATHECAL 10 MG/ML [Suspect]
     Active Substance: HYDROMORPHONE
     Dosage: 0.062 MG/DAY
  2. COMPOUNDED BACLOFEN INTRATHECAL 268MCG/ML [Suspect]
     Active Substance: BACLOFEN
     Dosage: 1.61 MCG/DAY

REACTIONS (1)
  - Sepsis [None]
